FAERS Safety Report 8472166-8 (Version None)
Quarter: 2012Q2

REPORT INFORMATION
  Report Type: 
  Country: None (occurrence: None)
  Receive Date: 20120627
  Receipt Date: 20120619
  Transmission Date: 20120825
  Serious: Yes (Death, Other)
  Sender: FDA-Public Use
  Company Number: US-ELI_LILLY_AND_COMPANY-US201204001087

PATIENT
  Sex: Female

DRUGS (2)
  1. FORTEO [Suspect]
     Dosage: 20 UG, QD
     Route: 058
  2. FORTEO [Suspect]
     Indication: OSTEOPOROSIS
     Dosage: 20 UG, QD
     Route: 058

REACTIONS (14)
  - CONDITION AGGRAVATED [None]
  - MASTICATION DISORDER [None]
  - DYSPHAGIA [None]
  - FEELING ABNORMAL [None]
  - HEPATIC CIRRHOSIS [None]
  - DEMENTIA ALZHEIMER'S TYPE [None]
  - PARKINSON'S DISEASE [None]
  - DEMENTIA [None]
  - MEMORY IMPAIRMENT [None]
  - MUSCULAR WEAKNESS [None]
  - DYSSTASIA [None]
  - DEATH [None]
  - BEDRIDDEN [None]
  - POSTURE ABNORMAL [None]
